FAERS Safety Report 7992329-5 (Version None)
Quarter: 2011Q4

REPORT INFORMATION
  Report Type: 
  Country: None (occurrence: None)
  Receive Date: 20111219
  Receipt Date: 20110921
  Transmission Date: 20120403
  Serious: No
  Sender: FDA-Public Use
  Company Number: US-ASTRAZENECA-2011SE44939

PATIENT
  Age: 60 Year
  Sex: Male
  Weight: 85.7 kg

DRUGS (6)
  1. BENACAR [Concomitant]
     Indication: DIABETES MELLITUS
  2. METFORMIN HCL [Concomitant]
     Indication: DIABETES MELLITUS
  3. VICTOZA [Concomitant]
     Indication: DIABETES MELLITUS
  4. CRESTOR [Suspect]
     Indication: BLOOD CHOLESTEROL ABNORMAL
     Route: 048
     Dates: start: 20010101
  5. CRESTOR [Suspect]
     Route: 048
     Dates: start: 20110101
  6. CRESTOR [Suspect]
     Route: 048
     Dates: start: 20060101

REACTIONS (6)
  - BLOOD CHOLESTEROL DECREASED [None]
  - WEIGHT DECREASED [None]
  - OFF LABEL USE [None]
  - GLYCOSYLATED HAEMOGLOBIN DECREASED [None]
  - JOINT STIFFNESS [None]
  - ARTHRALGIA [None]
